FAERS Safety Report 7677649-6 (Version None)
Quarter: 2011Q3

REPORT INFORMATION
  Report Type: 
  Country: None (occurrence: None)
  Receive Date: 20110811
  Receipt Date: 20110802
  Transmission Date: 20111222
  Serious: Yes (Other)
  Sender: FDA-Public Use
  Company Number: PHHY2011BR70890

PATIENT
  Sex: Male

DRUGS (2)
  1. FORMOTEROL FUMARATE [Suspect]
     Indication: ASTHMA
     Dosage: 1 CAPSULE OF EACH TREATMENT A DAY
  2. FORMOTEROL FUMARATE [Suspect]
     Dosage: 1 CAPSULE TWICE DAILY

REACTIONS (2)
  - GLAUCOMA [None]
  - DYSPNOEA [None]
